FAERS Safety Report 6573997-1 (Version None)
Quarter: 2010Q1

REPORT INFORMATION
  Report Type: 
  Country: None (occurrence: None)
  Receive Date: 20100208
  Receipt Date: 20100202
  Transmission Date: 20100710
  Serious: Yes (Other)
  Sender: FDA-Public Use
  Company Number: US-JNJFOC-20100202497

PATIENT
  Sex: Female
  Weight: 47.63 kg

DRUGS (9)
  1. DURAGESIC-100 [Suspect]
     Indication: SPINAL FRACTURE
     Dosage: 100 UG/HR 100 UG/HR
     Route: 062
  2. DURAGESIC-100 [Suspect]
     Dosage: 100 UG/HR 100 UG/HR
     Route: 062
  3. XANAX [Concomitant]
     Indication: PANIC ATTACK
     Route: 048
  4. VIVELLE-DOT [Concomitant]
     Indication: BLOOD OESTROGEN
     Route: 062
  5. COMBIVENT [Concomitant]
     Indication: CHRONIC OBSTRUCTIVE PULMONARY DISEASE
     Dosage: 2 PUFFS
     Route: 055
  6. ADVAIR DISKUS 100/50 [Concomitant]
     Indication: CHRONIC OBSTRUCTIVE PULMONARY DISEASE
     Route: 055
  7. DICYCLOMINE [Concomitant]
     Indication: CROHN'S DISEASE
     Route: 048
  8. NEXIUM [Concomitant]
     Indication: CROHN'S DISEASE
     Route: 048
  9. OXYCODONE HCL [Concomitant]
     Indication: SPINAL FRACTURE
     Route: 048

REACTIONS (5)
  - APPLICATION SITE RASH [None]
  - DRUG INEFFECTIVE [None]
  - NAUSEA [None]
  - POOR QUALITY SLEEP [None]
  - WEIGHT INCREASED [None]
